FAERS Safety Report 18101461 (Version 1)
Quarter: 2020Q3

REPORT INFORMATION
  Report Type: Spontaneous
  Country: GB (occurrence: GB)
  Receive Date: 20200801
  Receipt Date: 20200801
  Transmission Date: 20201103
  Serious: Yes (Other)
  Sender: FDA-Public Use
  Company Number: GB-ASCEND THERAPEUTICS US, LLC-2088033

PATIENT
  Age: 47 Year
  Sex: Female
  Weight: 67 kg

DRUGS (6)
  1. ESTROGEL [Suspect]
     Active Substance: ESTRADIOL
     Indication: PRODUCT USED FOR UNKNOWN INDICATION
     Route: 065
     Dates: start: 20200519
  2. NITROFURANTOIN. [Concomitant]
     Active Substance: NITROFURANTOIN
     Route: 065
     Dates: start: 20200418, end: 20200425
  3. ESTROGEL [Suspect]
     Active Substance: ESTRADIOL
  4. OESTRODOSE (ESTRADIOL) [Suspect]
     Active Substance: ESTRADIOL
     Route: 065
  5. UTROGESTAN (MICRONIZED PROGESTERONE), UNKNOWN?INDICATION FOR USE: DRUG [Concomitant]
     Route: 065
  6. NYSTATIN. [Concomitant]
     Active Substance: NYSTATIN
     Route: 065

REACTIONS (3)
  - Product dispensing error [Unknown]
  - Menopausal symptoms [Unknown]
  - Drug ineffective [Recovering/Resolving]

NARRATIVE: CASE EVENT DATE: 20200707
